FAERS Safety Report 5989705-9 (Version None)
Quarter: 2008Q4

REPORT INFORMATION
  Report Type: 
  Country: None (occurrence: None)
  Receive Date: 20081210
  Receipt Date: 20081126
  Transmission Date: 20090506
  Serious: No
  Sender: FDA-Public Use
  Company Number: US-B.I. PHARMACEUTICALS,INC./RIDGEFIELD-2008-BP-17972BP

PATIENT

DRUGS (1)
  1. ATROVENT HFA [Suspect]

REACTIONS (2)
  - RASH [None]
  - URTICARIA [None]
